FAERS Safety Report 9897257 (Version 2)
Quarter: 2014Q1

REPORT INFORMATION
  Report Type: Report from Study
  Country: FR (occurrence: FR)
  Receive Date: 20140214
  Receipt Date: 20140214
  Transmission Date: 20141002
  Serious: Yes (Hospitalization, Other)
  Sender: FDA-Public Use
  Company Number: FR-ROCHE-1164862

PATIENT
  Age: 69 Year
  Sex: Female

DRUGS (7)
  1. RITUXIMAB [Suspect]
     Indication: RHEUMATOID ARTHRITIS
     Route: 065
  2. SALAZOPYRINE [Concomitant]
  3. METHOTREXATE [Concomitant]
  4. LEFLUNOMIDE [Concomitant]
  5. CORTANCYL [Concomitant]
  6. METHYLPREDNISOLONE [Concomitant]
  7. PARACETAMOL [Concomitant]

REACTIONS (8)
  - Sepsis [Recovered/Resolved with Sequelae]
  - Bronchitis [Unknown]
  - Pulmonary oedema [Unknown]
  - Anaemia [Not Recovered/Not Resolved]
  - Dyspnoea [Not Recovered/Not Resolved]
  - Infusion related reaction [Recovered/Resolved]
  - Hypertension [Recovered/Resolved]
  - Memory impairment [Unknown]
